FAERS Safety Report 7771026-5 (Version None)
Quarter: 2011Q3

REPORT INFORMATION
  Report Type: 
  Country: None (occurrence: None)
  Receive Date: 20110922
  Receipt Date: 20110128
  Transmission Date: 20111222
  Serious: No
  Sender: FDA-Public Use
  Company Number: US-ASTRAZENECA-2011SE05109

PATIENT
  Age: 47 Year
  Sex: Male
  Weight: 86.2 kg

DRUGS (6)
  1. SEROQUEL [Suspect]
     Indication: NEUROLOGICAL SYMPTOM
     Route: 048
  2. VISTARIL [Concomitant]
  3. LITHIUM CARBONATE [Concomitant]
  4. SEROQUEL [Suspect]
     Indication: DEPRESSION
     Route: 048
  5. XANAX [Concomitant]
  6. PAXIL [Concomitant]

REACTIONS (5)
  - INSOMNIA [None]
  - APHAGIA [None]
  - ABDOMINAL PAIN UPPER [None]
  - MOVEMENT DISORDER [None]
  - DRUG DOSE OMISSION [None]
